FAERS Safety Report 17500874 (Version 1)
Quarter: 2020Q1

REPORT INFORMATION
  Report Type: Spontaneous
  Country: US (occurrence: US)
  Receive Date: 20200224
  Receipt Date: 20200224
  Transmission Date: 20200409
  Serious: Yes (Hospitalization)
  Sender: FDA-Public Use
  Company Number: None

PATIENT
  Age: 54 Year
  Sex: Female

DRUGS (1)
  1. IBRANCE [Suspect]
     Active Substance: PALBOCICLIB
     Dosage: ?          OTHER DOSE:1 TABLET;?
     Route: 048
     Dates: start: 2018

REACTIONS (2)
  - Spinal fracture [None]
  - Therapy cessation [None]

NARRATIVE: CASE EVENT DATE: 20200216
